FAERS Safety Report 7177830-9 (Version None)
Quarter: 2010Q4

REPORT INFORMATION
  Report Type: 
  Country: None (occurrence: None)
  Receive Date: 20101220
  Receipt Date: 20101119
  Transmission Date: 20110411
  Serious: Yes (Death, Hospitalization, Other)
  Sender: FDA-Public Use
  Company Number: US-BAXTER-2009BH012328

PATIENT
  Age: 74 Year
  Sex: Female
  Weight: 95 kg

DRUGS (45)
  1. HEPARIN SODIUM INJECTION [Suspect]
     Indication: HAEMODIALYSIS
     Route: 010
     Dates: start: 20071121
  2. HEPARIN SODIUM INJECTION [Suspect]
     Route: 010
     Dates: start: 20071227
  3. HEPARIN SODIUM INJECTION [Suspect]
     Route: 010
     Dates: start: 20030427, end: 20030427
  4. HEPARIN SODIUM INJECTION [Suspect]
     Route: 010
     Dates: start: 20080109
  5. HEPARIN SODIUM INJECTION [Suspect]
     Route: 010
     Dates: start: 20030430, end: 20030430
  6. HEPARIN SODIUM INJECTION [Suspect]
     Route: 010
     Dates: start: 20030503, end: 20080122
  7. HEPARIN SODIUM INJECTION [Suspect]
     Route: 010
     Dates: start: 20071229
  8. HEPARIN SODIUM INJECTION [Suspect]
     Route: 010
     Dates: start: 20070102
  9. HEPARIN SODIUM INJECTION [Suspect]
     Route: 010
     Dates: start: 20070105
  10. HEPARIN SODIUM INJECTION [Suspect]
     Route: 010
     Dates: start: 20070108
  11. HEPARIN SODIUM INJECTION [Suspect]
     Route: 010
     Dates: start: 20070110
  12. HEPARIN SODIUM INJECTION [Suspect]
     Route: 010
     Dates: start: 20070112
  13. HEPARIN SODIUM INJECTION [Suspect]
     Route: 010
     Dates: start: 20070115
  14. HEPARIN SODIUM INJECTION [Suspect]
     Route: 010
     Dates: start: 20071213, end: 20080119
  15. HEPARIN SODIUM INJECTION [Suspect]
     Route: 010
     Dates: start: 20070119
  16. HEPARIN SODIUM INJECTION [Suspect]
     Route: 010
     Dates: start: 20071213, end: 20080119
  17. HEPARIN SODIUM INJECTION [Suspect]
     Route: 010
     Dates: start: 20080109
  18. HEPARIN SODIUM INJECTION [Suspect]
     Route: 010
     Dates: start: 20071213, end: 20080119
  19. HEPARIN SODIUM INJECTION [Suspect]
     Indication: THROMBOSIS PROPHYLAXIS
     Route: 010
     Dates: start: 20070919
  20. HEPARIN SODIUM INJECTION [Suspect]
     Route: 010
     Dates: start: 20071031
  21. HEPARIN SODIUM INJECTION [Suspect]
     Route: 010
     Dates: start: 20071215, end: 20071215
  22. HEPARIN SODIUM INJECTION [Suspect]
     Route: 010
     Dates: start: 20071212, end: 20071212
  23. HEPARIN SODIUM INJECTION [Suspect]
     Route: 010
     Dates: start: 20071212, end: 20071212
  24. HEPARIN SODIUM INJECTION [Suspect]
     Route: 010
     Dates: start: 20071218, end: 20071218
  25. HEPARIN SODIUM INJECTION [Suspect]
     Route: 010
     Dates: start: 20071220, end: 20071220
  26. HEPARIN SODIUM INJECTION [Suspect]
     Route: 010
     Dates: start: 20071222, end: 20071222
  27. HEPARIN SODIUM INJECTION [Suspect]
     Route: 010
     Dates: start: 20071224, end: 20071224
  28. FUROSEMIDE [Concomitant]
     Indication: PRODUCT USED FOR UNKNOWN INDICATION
     Route: 048
  29. ELAVIL [Concomitant]
     Indication: PRODUCT USED FOR UNKNOWN INDICATION
     Route: 048
  30. PHOSLO [Concomitant]
     Indication: PRODUCT USED FOR UNKNOWN INDICATION
     Route: 048
  31. RENAGEL [Concomitant]
     Indication: PRODUCT USED FOR UNKNOWN INDICATION
     Route: 048
  32. DIATX [Concomitant]
     Indication: PRODUCT USED FOR UNKNOWN INDICATION
     Route: 048
  33. COZAAR [Concomitant]
     Indication: PRODUCT USED FOR UNKNOWN INDICATION
     Route: 048
  34. NPH INSULIN [Concomitant]
     Indication: PRODUCT USED FOR UNKNOWN INDICATION
     Route: 065
  35. NPH INSULIN [Concomitant]
     Route: 048
  36. INSULIN [Concomitant]
     Indication: PRODUCT USED FOR UNKNOWN INDICATION
     Route: 065
  37. ATORVASTATIN CALCIUM [Concomitant]
     Indication: PRODUCT USED FOR UNKNOWN INDICATION
     Route: 048
  38. SENSIPAR [Concomitant]
     Indication: PRODUCT USED FOR UNKNOWN INDICATION
     Route: 048
  39. DIPHENHYDRAMINE [Concomitant]
     Indication: PRODUCT USED FOR UNKNOWN INDICATION
     Route: 048
  40. HYDROCODONE [Concomitant]
     Indication: PRODUCT USED FOR UNKNOWN INDICATION
     Route: 048
  41. ANTIBIOTICS [Concomitant]
     Indication: PRODUCT USED FOR UNKNOWN INDICATION
     Route: 065
  42. IRON [Concomitant]
     Indication: PRODUCT USED FOR UNKNOWN INDICATION
     Route: 065
  43. EPOGEN [Concomitant]
     Indication: PRODUCT USED FOR UNKNOWN INDICATION
     Route: 065
  44. INSULIN [Concomitant]
     Route: 065
  45. LOVENOX [Concomitant]
     Indication: THROMBOSIS PROPHYLAXIS
     Route: 058
     Dates: start: 20080121

REACTIONS (24)
  - ABASIA [None]
  - ABDOMINAL PAIN [None]
  - ACUTE MYOCARDIAL INFARCTION [None]
  - ANAEMIA [None]
  - ANXIETY [None]
  - ASTHENIA [None]
  - ATRIAL FIBRILLATION [None]
  - BACK PAIN [None]
  - BLOOD PRESSURE DECREASED [None]
  - BREAST MASS [None]
  - CARDIAC ARREST [None]
  - CARDIO-RESPIRATORY ARREST [None]
  - CELLULITIS [None]
  - DECREASED APPETITE [None]
  - DEPRESSED LEVEL OF CONSCIOUSNESS [None]
  - DYSPNOEA [None]
  - FATIGUE [None]
  - HEART RATE IRREGULAR [None]
  - HYPOTENSION [None]
  - RESPIRATORY FAILURE [None]
  - SEPTIC SHOCK [None]
  - SPEECH DISORDER [None]
  - URINARY TRACT INFECTION [None]
  - VENTRICULAR TACHYCARDIA [None]
